FAERS Safety Report 25466573 (Version 2)
Quarter: 2025Q3

REPORT INFORMATION
  Report Type: Report from Study
  Country: EU (occurrence: EU)
  Receive Date: 20250623
  Receipt Date: 20250702
  Transmission Date: 20251020
  Serious: No
  Sender: KARYOPHARM THERAPEUTICS
  Company Number: EU-KARYOPHARM-2025KPT100348

PATIENT
  Age: 77 Year
  Sex: Female

DRUGS (6)
  1. SELINEXOR [Suspect]
     Active Substance: SELINEXOR
     Indication: Endometrial cancer
  2. SELINEXOR [Suspect]
     Active Substance: SELINEXOR
     Indication: Recurrent cancer
  3. ONDANSETRON [Concomitant]
     Active Substance: ONDANSETRON
     Indication: Prophylaxis
     Route: 065
     Dates: start: 20211201
  4. OXAZEPAM [Concomitant]
     Active Substance: OXAZEPAM
     Indication: Insomnia
     Route: 065
     Dates: start: 20230223
  5. OMEPRAZOLE [Concomitant]
     Active Substance: OMEPRAZOLE
     Route: 065
     Dates: start: 20230419
  6. MOTILIUM [Concomitant]
     Active Substance: DOMPERIDONE
     Indication: Abdominal discomfort
     Route: 065
     Dates: start: 20230419

REACTIONS (1)
  - No adverse event [Unknown]
